FAERS Safety Report 10993856 (Version 1)
Quarter: 2015Q2

REPORT INFORMATION
  Report Type: Spontaneous
  Country: US (occurrence: None)
  Receive Date: 20150406
  Receipt Date: 20150406
  Transmission Date: 20150821
  Serious: Yes (Other)
  Sender: FDA-Public Use
  Company Number: None

PATIENT
  Age: 73 Year
  Sex: Male

DRUGS (1)
  1. XTANDI [Suspect]
     Active Substance: ENZALUTAMIDE
     Dosage: ORAL 4QD
     Route: 048
     Dates: start: 20150113

REACTIONS (4)
  - Myalgia [None]
  - Hot flush [None]
  - Back pain [None]
  - Fatigue [None]

NARRATIVE: CASE EVENT DATE: 20150402
